FAERS Safety Report 4582747-X (Version None)
Quarter: 2005Q1

REPORT INFORMATION
  Report Type: 
  Country: None (occurrence: None)
  Receive Date: 20050127
  Receipt Date: 20040706
  Transmission Date: 20050727
  Serious: Yes (Hospitalization)
  Sender: FDA-Public Use
  Company Number: 04-07-0974

PATIENT
  Age: 60 Year
  Sex: Male
  Weight: 92.9874 kg

DRUGS (6)
  1. HYDROCHLOROTHIAZIDE [Suspect]
     Indication: HYPERTENSION
     Dosage: 25MG QD ORAL
     Route: 048
     Dates: start: 20040407, end: 20040507
  2. COZAAR [Concomitant]
  3. PULMICORT [Concomitant]
  4. SEREVENT [Concomitant]
  5. ALBUTEROL SULFATE [Concomitant]
  6. FLONASE [Concomitant]

REACTIONS (1)
  - DIZZINESS [None]
